FAERS Safety Report 18291844 (Version 1)
Quarter: 2020Q3

REPORT INFORMATION
  Report Type: Spontaneous
  Country: US (occurrence: US)
  Receive Date: 20200922
  Receipt Date: 20200922
  Transmission Date: 20201103
  Serious: Yes (Other)
  Sender: FDA-Public Use
  Company Number: US-ABBVIE-19K-163-3178901-00

PATIENT
  Sex: Female
  Weight: 45.4 kg

DRUGS (2)
  1. IMBRUVICA [Suspect]
     Active Substance: IBRUTINIB
     Indication: CHRONIC LYMPHOCYTIC LEUKAEMIA
     Route: 048
  2. IMBRUVICA [Suspect]
     Active Substance: IBRUTINIB
     Route: 048
     Dates: start: 2019

REACTIONS (8)
  - Decreased appetite [Not Recovered/Not Resolved]
  - Eating disorder [Unknown]
  - Weight increased [Recovering/Resolving]
  - Fractured sacrum [Unknown]
  - Abdominal distension [Unknown]
  - Gait inability [Unknown]
  - Pain in extremity [Not Recovered/Not Resolved]
  - Nausea [Recovering/Resolving]
